FAERS Safety Report 7532809-X (Version None)
Quarter: 2011Q2

REPORT INFORMATION
  Report Type: 
  Country: None (occurrence: None)
  Receive Date: 20110608
  Receipt Date: 20110602
  Transmission Date: 20111010
  Serious: Yes (Hospitalization)
  Sender: FDA-Public Use
  Company Number: B0724868A

PATIENT
  Sex: Male

DRUGS (2)
  1. SUMATRIPTAN SUCCINATE [Suspect]
     Dates: start: 20110531
  2. UNKNOWN INJECTION [Concomitant]

REACTIONS (3)
  - ILL-DEFINED DISORDER [None]
  - CLUSTER HEADACHE [None]
  - DRUG INEFFECTIVE [None]
